FAERS Safety Report 8590813 (Version 2)
Quarter: 2012Q4

REPORT INFORMATION
  Report Type: 
  Country: US (occurrence: US)
  Receive Date: 20120601
  Receipt Date: 20120913
  Transmission Date: 20130627
  Serious: Yes (Hospitalization, Other)
  Sender: FDA-Public Use
  Company Number: US-BAYER-2012-053213

PATIENT
  Age: 38 Year
  Sex: Female
  Weight: 81.63 kg

DRUGS (18)
  1. YAZ [Suspect]
     Indication: CONTRACEPTION
     Dosage: UNK
     Dates: start: 20080228, end: 20100222
  2. ADVAIR DISKUS [Concomitant]
     Dosage: 500/50 mcg/ twice daily
  3. PROAIR HFA [Concomitant]
     Dosage: 90 ?g, UNK
  4. FLUOXETINE [Concomitant]
     Dosage: 20 mg, UNK
     Route: 048
  5. TOPIRAMATE [Concomitant]
     Dosage: 25 mg, UNK
     Route: 048
  6. METHYLPREDNISOLONE [Concomitant]
     Dosage: 4 mg, UNK
     Route: 048
  7. AMOXICILLIN [Concomitant]
     Dosage: 875 mg, BID
     Route: 048
  8. ALBUTEROL SULFATE [Concomitant]
     Dosage: 0.83 mg/ml
     Route: 045
  9. TRIAMCINOLONE ACETONIDE [Concomitant]
     Route: 061
  10. CLOBETASOL [Concomitant]
     Route: 061
  11. PROAMATINE [Concomitant]
     Dosage: 2.5 mg, UNK
     Route: 048
  12. MAXALT [Concomitant]
     Dosage: 10 mg, UNK
     Route: 048
  13. FOLIC ACID [Concomitant]
     Dosage: 1 mg, UNK
     Route: 048
  14. MULTIVITAMIN [Concomitant]
     Route: 048
  15. PROZAC [Concomitant]
     Dosage: 20 mg, UNK
  16. TOPAMAX [Concomitant]
     Dosage: 100 mg, UNK
  17. TOPAMAX [Concomitant]
     Dosage: 25 mg, UNK
  18. TORADOL [Concomitant]

REACTIONS (9)
  - Pulmonary embolism [Recovered/Resolved]
  - Syncope [None]
  - Menorrhagia [None]
  - Injury [None]
  - Pain [None]
  - Chest pain [Recovered/Resolved]
  - Dyspnoea [Recovered/Resolved]
  - Dehydration [None]
  - Chest discomfort [Recovered/Resolved]
